FAERS Safety Report 8427626-2 (Version None)
Quarter: 2012Q2

REPORT INFORMATION
  Report Type: 
  Country: None (occurrence: None)
  Receive Date: 20120611
  Receipt Date: 20120530
  Transmission Date: 20120825
  Serious: Yes (Life-Threatening, Hospitalization, Disabling)
  Sender: FDA-Public Use
  Company Number: JP-EISAI INC-E7389-01550-SPO-JP

PATIENT
  Sex: Female
  Weight: 58 kg

DRUGS (20)
  1. CEFTAZIDIME SODIUM [Concomitant]
     Indication: PROPHYLAXIS
  2. HALAVEN [Suspect]
     Indication: BREAST CANCER RECURRENT
     Route: 041
     Dates: start: 20110830, end: 20110920
  3. MEILAX [Concomitant]
  4. OMEGACIN [Concomitant]
     Indication: PROPHYLAXIS
  5. HALAVEN [Suspect]
  6. MAGNESIUM OXIDE [Concomitant]
  7. HALAVEN [Suspect]
     Indication: METASTASES TO BONE
  8. POLARAMINE [Concomitant]
     Indication: PROPHYLAXIS
  9. PURSENNID [Concomitant]
  10. HALAVEN [Suspect]
  11. FAMOTIDINE [Concomitant]
     Indication: PROPHYLAXIS
  12. HALAVEN [Suspect]
  13. DECADRON [Concomitant]
     Indication: PROPHYLAXIS
  14. HALAVEN [Suspect]
     Indication: METASTASES TO BREAST
  15. HALAVEN [Suspect]
     Indication: METASTASES TO LYMPH NODES
  16. HALAVEN [Suspect]
     Indication: METASTASES TO LIVER
  17. FEMARA [Concomitant]
     Indication: BREAST CANCER RECURRENT
  18. ALOXI [Concomitant]
     Indication: PROPHYLAXIS
  19. BETAMETHASONE [Concomitant]
  20. ZOMETA [Concomitant]
     Indication: PROPHYLAXIS

REACTIONS (6)
  - MUSCULAR WEAKNESS [None]
  - THROMBOCYTOPENIA [None]
  - HYPOXIA [None]
  - RADIATION PNEUMONITIS [None]
  - INTERSTITIAL LUNG DISEASE [None]
  - THROMBOTIC THROMBOCYTOPENIC PURPURA [None]
